FAERS Safety Report 10157331 (Version 1)
Quarter: 2014Q2

REPORT INFORMATION
  Report Type: Spontaneous
  Country: US (occurrence: US)
  Receive Date: 20140507
  Receipt Date: 20140507
  Transmission Date: 20141212
  Serious: Yes (Death, Other)
  Sender: FDA-Public Use
  Company Number: US-MERCK-1404USA015472

PATIENT
  Age: 66 Year
  Sex: Male

DRUGS (1)
  1. NOXAFIL [Suspect]
     Indication: LEUKAEMIA
     Dosage: UNK
     Route: 048

REACTIONS (2)
  - Leukaemia [Fatal]
  - Drug administration error [Unknown]
